FAERS Safety Report 6923275-3 (Version None)
Quarter: 2010Q3

REPORT INFORMATION
  Report Type: 
  Country: None (occurrence: None)
  Receive Date: 20100813
  Receipt Date: 20100805
  Transmission Date: 20110219
  Serious: Yes (Hospitalization)
  Sender: FDA-Public Use
  Company Number: US-ROCHE-719993

PATIENT
  Sex: Male
  Weight: 122 kg

DRUGS (8)
  1. BLINDED TOCILIZUMAB [Suspect]
     Indication: RHEUMATOID ARTHRITIS
     Dosage: DOSAGE FORM: IV. LAST DOSE PRIOR TO SAE: 09 JUNE 2010
     Route: 042
     Dates: start: 20080805
  2. HYDROXYCHLOROQUINE [Concomitant]
     Dates: start: 20090806, end: 20100803
  3. ASCORBIC ACID [Concomitant]
     Dates: start: 20090806, end: 20100803
  4. FOLIC ACID [Concomitant]
     Dates: start: 20090920, end: 20100803
  5. CALCIUM [Concomitant]
     Dates: start: 20080226, end: 20100803
  6. MEDROL [Concomitant]
     Dates: start: 20100719, end: 20100803
  7. DICLOFENAC SODIUM [Concomitant]
     Dates: start: 20080724, end: 20100803
  8. ULTRACET [Concomitant]
     Dosage: FREQUENCY: 3 TABS DAILY
     Dates: start: 20080716, end: 20100403

REACTIONS (1)
  - PULMONARY EMBOLISM [None]
